FAERS Safety Report 8482478-X (Version None)
Quarter: 2012Q3

REPORT INFORMATION
  Report Type: 
  Country: None (occurrence: None)
  Receive Date: 20120702
  Receipt Date: 20120624
  Transmission Date: 20120928
  Serious: Yes (Other)
  Sender: FDA-Public Use
  Company Number: US-JNJFOC-20120613471

PATIENT
  Sex: Female

DRUGS (17)
  1. RESVERATROL [Concomitant]
     Route: 065
  2. IRON [Concomitant]
     Route: 065
  3. UBIQUINON [Concomitant]
     Route: 065
  4. CALCIUM [Concomitant]
     Route: 065
  5. METHYLSULFONYLMETHANE [Concomitant]
     Indication: ALOPECIA
     Route: 065
  6. ROGAINE (FOR WOMEN) [Suspect]
     Route: 061
  7. ASCORBIC ACID [Concomitant]
     Indication: ALOPECIA
     Route: 065
  8. ANTI-ASTHMA MEDICATION [Concomitant]
     Indication: ASTHMA
     Route: 065
  9. UNSPECIFIED ARTHRITIC MEDICATION [Concomitant]
     Indication: ARTHRITIS
     Route: 065
  10. ONE-A-DAY MULTIVITAMINS [Concomitant]
     Route: 065
  11. UNKNOWN MEDICATION [Suspect]
     Indication: ALOPECIA
     Route: 065
  12. VITAMIN D [Concomitant]
     Route: 065
  13. LOVAZA [Concomitant]
     Route: 065
  14. ROGAINE (FOR WOMEN) [Suspect]
     Indication: ALOPECIA
     Dosage: AM AND PM
     Route: 061
     Dates: start: 20110101
  15. PROBIOTICS [Concomitant]
     Route: 065
  16. ZINC SULFATE [Concomitant]
     Route: 065
  17. UNSPECIFIED THYROID REPLACEMENT [Concomitant]
     Indication: THYROID HORMONE REPLACEMENT THERAPY
     Route: 065

REACTIONS (4)
  - ALOPECIA [None]
  - HAIR TEXTURE ABNORMAL [None]
  - CEREBROVASCULAR ACCIDENT [None]
  - WRONG TECHNIQUE IN DRUG USAGE PROCESS [None]
